FAERS Safety Report 6888981-8 (Version None)
Quarter: 2010Q3

REPORT INFORMATION
  Report Type: 
  Country: None (occurrence: None)
  Receive Date: 20100730
  Receipt Date: 20071204
  Transmission Date: 20110219
  Serious: No
  Sender: FDA-Public Use
  Company Number: US-PFIZER INC-2007046161

PATIENT
  Sex: Male
  Weight: 113.4 kg

DRUGS (11)
  1. LIPITOR [Suspect]
     Indication: BLOOD CHOLESTEROL INCREASED
     Route: 048
     Dates: start: 20040101, end: 20070501
  2. LISINOPRIL [Concomitant]
  3. VICODIN [Concomitant]
  4. ACETYLSALICYLIC ACID SRT [Concomitant]
  5. VALIUM [Concomitant]
  6. CLARITIN-D [Concomitant]
  7. LEXAPRO [Concomitant]
  8. DOXYCYCLINE [Concomitant]
  9. MULTI-VITAMINS [Concomitant]
  10. LANTUS [Concomitant]
  11. NOVOLOG [Concomitant]

REACTIONS (4)
  - ARTHRALGIA [None]
  - MUSCULAR WEAKNESS [None]
  - MUSCULOSKELETAL STIFFNESS [None]
  - MYALGIA [None]
